FAERS Safety Report 7397966-7 (Version None)
Quarter: 2011Q2

REPORT INFORMATION
  Report Type: 
  Country: None (occurrence: None)
  Receive Date: 20110406
  Receipt Date: 20110401
  Transmission Date: 20111010
  Serious: Yes (Hospitalization)
  Sender: FDA-Public Use
  Company Number: GB-PFIZER INC-2011065210

PATIENT
  Sex: Male

DRUGS (8)
  1. TAZOCIN [Suspect]
     Indication: PNEUMONIA
  2. INSULIN [Concomitant]
  3. SIMVASTATIN [Concomitant]
     Dosage: 40 MG, 1X/DAY
     Route: 048
  4. CLARITHROMYCIN [Concomitant]
     Dosage: 500 MG, 2X/DAY
     Route: 048
     Dates: start: 20110224, end: 20110226
  5. WARFARIN [Concomitant]
     Route: 048
  6. AUGMENTIN [Concomitant]
     Dosage: 1.2 G, 3X/DAY
     Route: 042
     Dates: start: 20110224, end: 20110226
  7. FUROSEMIDE [Concomitant]
     Dosage: 40 MG, 2X/DAY
     Route: 042
  8. TAZOCIN [Suspect]
     Indication: NOSOCOMIAL INFECTION
     Dosage: 4.5 G, 3X/DAY
     Route: 042
     Dates: start: 20110226, end: 20110304

REACTIONS (5)
  - BLOOD ALKALINE PHOSPHATASE INCREASED [None]
  - HEPATITIS [None]
  - BLOOD GLUCOSE DECREASED [None]
  - ALANINE AMINOTRANSFERASE INCREASED [None]
  - C-REACTIVE PROTEIN INCREASED [None]
